FAERS Safety Report 23592225 (Version 1)
Quarter: 2024Q1

REPORT INFORMATION
  Report Type: Spontaneous
  Country: NL (occurrence: NL)
  Receive Date: 20240304
  Receipt Date: 20240304
  Transmission Date: 20240409
  Serious: Yes (Other)
  Sender: FDA-Public Use
  Company Number: NL-FreseniusKabi-FK202403359

PATIENT
  Age: 61 Year
  Sex: Male

DRUGS (5)
  1. SALINE [Suspect]
     Active Substance: SODIUM CHLORIDE
     Indication: Vehicle solution use
     Dosage: FOR TPE, WE USED A 40 G/L ALBUMIN-SALINE SOLUTION(4% ALBUMIN)
  2. ALBUMIN HUMAN [Suspect]
     Active Substance: ALBUMIN HUMAN
     Indication: Plasmapheresis
     Dosage: FOR TPE, WE USED A 40 G/L ALBUMIN-SALINE SOLUTION(4% ALBUMIN)
  3. METHYLPREDNISOLONE [Concomitant]
     Active Substance: METHYLPREDNISOLONE
     Indication: Kidney transplant rejection
  4. SODIUM BICARBONATE [Concomitant]
     Active Substance: SODIUM BICARBONATE
     Indication: Kidney transplant rejection
     Dosage: (3 G/DAY)
     Route: 048
  5. immunostym [Concomitant]
     Indication: Kidney transplant rejection
     Dosage: (3 G/DAY)
     Route: 048

REACTIONS (2)
  - Metabolic acidosis [Recovered/Resolved]
  - Hyperchloraemia [Recovered/Resolved]
